FAERS Safety Report 23903020 (Version 1)
Quarter: 2024Q2

REPORT INFORMATION
  Report Type: Report from Study
  Country: US (occurrence: US)
  Receive Date: 20240527
  Receipt Date: 20240527
  Transmission Date: 20240715
  Serious: Yes (Hospitalization)
  Sender: FDA-Public Use
  Company Number: US-ESPERIONTHERAPEUTICS-2024USA00733

PATIENT
  Age: 73 Year
  Sex: Female

DRUGS (2)
  1. BEMPEDOIC ACID\EZETIMIBE [Suspect]
     Active Substance: BEMPEDOIC ACID\EZETIMIBE
     Indication: Product used for unknown indication
     Dosage: 1 DOSAGE FORM (180/10MG), QD
     Route: 065
     Dates: start: 2023
  2. BEMPEDOIC ACID\EZETIMIBE [Suspect]
     Active Substance: BEMPEDOIC ACID\EZETIMIBE
     Dosage: 1 TABLET THREE TIMES A WEEK (MON, WED, SAT)
     Route: 065
     Dates: start: 2024

REACTIONS (2)
  - Hip surgery [Unknown]
  - Muscle spasms [Recovered/Resolved]

NARRATIVE: CASE EVENT DATE: 20230601
